FAERS Safety Report 25884544 (Version 2)
Quarter: 2025Q4

REPORT INFORMATION
  Report Type: Report from Study
  Country: KR (occurrence: KR)
  Receive Date: 20251006
  Receipt Date: 20251027
  Transmission Date: 20260118
  Serious: Yes (Hospitalization)
  Sender: ABBVIE
  Company Number: KR-ABBVIE-6487620

PATIENT
  Age: 89 Year
  Sex: Male
  Weight: 55 kg

DRUGS (24)
  1. VENCLEXTA [Suspect]
     Active Substance: VENETOCLAX
     Indication: Chronic lymphocytic leukaemia
     Dosage: 100 MILLIGRAM, FILM COATED TABLET
     Route: 048
     Dates: start: 20241202, end: 20241215
  2. VENCLEXTA [Suspect]
     Active Substance: VENETOCLAX
     Indication: Chronic lymphocytic leukaemia
     Dosage: 20 MILLIGRAM, FILM COATED TABLET
     Route: 048
     Dates: start: 20241108, end: 20241114
  3. VENCLEXTA [Suspect]
     Active Substance: VENETOCLAX
     Indication: Chronic lymphocytic leukaemia
     Dosage: 100 MILLIGRAM, FILM COATED TABLET
     Route: 048
     Dates: start: 20241124, end: 20241130
  4. VENCLEXTA [Suspect]
     Active Substance: VENETOCLAX
     Indication: Chronic lymphocytic leukaemia
     Dosage: 50 MILLIGRAM, FILM COATED TABLET
     Route: 048
     Dates: start: 20241116, end: 20241123
  5. VENCLEXTA [Suspect]
     Active Substance: VENETOCLAX
     Indication: Chronic lymphocytic leukaemia
     Dosage: 50 MILLIGRAM, FILM COATED TABLET
     Route: 048
     Dates: start: 20241223, end: 20241226
  6. Kyongbo ceftriaxone sodium [Concomitant]
     Indication: C-reactive protein increased
     Dosage: 2 GRAM
     Route: 042
     Dates: start: 20241220, end: 20241223
  7. NEXIUM [Concomitant]
     Active Substance: ESOMEPRAZOLE MAGNESIUM
     Indication: Gastrointestinal disorder prophylaxis
     Dosage: 20 MILLIGRAM
     Route: 048
     Dates: start: 20241030, end: 20250115
  8. ALLOPURINOL [Concomitant]
     Active Substance: ALLOPURINOL
     Indication: Prophylaxis
     Dosage: 100 MILLIGRAM
     Route: 048
     Dates: start: 20241030, end: 20241202
  9. Tazoperan [Concomitant]
     Indication: C-reactive protein increased
     Dosage: 4.5 GRAM
     Route: 042
     Dates: start: 20241230, end: 20250108
  10. AUGMENTIN [Concomitant]
     Active Substance: AMOXICILLIN\CLAVULANATE POTASSIUM
     Indication: C-reactive protein increased
     Dosage: 375 MILLIGRAM
     Route: 048
     Dates: start: 20250116, end: 20250123
  11. Harmonilan [Concomitant]
     Indication: Decreased appetite
     Dosage: 200 ML?SOLUTION
     Route: 048
     Dates: start: 20241218, end: 20250116
  12. MAGNESIUM HYDROXIDE [Concomitant]
     Active Substance: MAGNESIUM HYDROXIDE
     Indication: Constipation
     Dosage: 500 MILLIGRAM
     Route: 048
     Dates: start: 20241230, end: 20250116
  13. TEGOPRAZAN [Concomitant]
     Active Substance: TEGOPRAZAN
     Indication: Gastrointestinal disorder prophylaxis
     Dosage: 50 MILLIGRAM
     Route: 048
     Dates: start: 20250116, end: 20250206
  14. Tylicol [Concomitant]
     Indication: Pyrexia
     Dosage: 1 GRAM
     Route: 042
     Dates: start: 20250304
  15. ZOLPIDEM TARTRATE [Concomitant]
     Active Substance: ZOLPIDEM TARTRATE
     Indication: Insomnia
     Dosage: 6.25 MILLIGRAM
     Route: 048
     Dates: start: 20241107, end: 20250301
  16. DARBEPOETIN ALFA [Concomitant]
     Active Substance: DARBEPOETIN ALFA
     Indication: Anaemia
     Dosage: 120 MICROGRAM?PREFILLED
     Route: 058
     Dates: start: 20241218, end: 20250221
  17. Dong a suprax [Concomitant]
     Indication: C-reactive protein increased
     Dosage: 200 MILLIGRAM
     Route: 048
     Dates: start: 20241216, end: 20241219
  18. Synatura [Concomitant]
     Indication: Rhinorrhoea
     Dosage: 45 ML
     Route: 048
     Dates: start: 20250228
  19. HARNAL [Concomitant]
     Active Substance: TAMSULOSIN HYDROCHLORIDE
     Indication: Benign prostatic hyperplasia
     Dosage: 0.2 MILLIGRAM
     Route: 048
     Dates: start: 20230328
  20. Solondo [Concomitant]
     Indication: Chronic lymphocytic leukaemia
     Dosage: 20 MILLIGRAM
     Route: 048
     Dates: start: 20241030, end: 20250221
  21. QUETIAPINE FUMARATE [Concomitant]
     Active Substance: QUETIAPINE FUMARATE
     Indication: Insomnia
     Dosage: 12.5 MILLIGRAM
     Route: 048
     Dates: start: 20250304
  22. MAXIPIME [Concomitant]
     Active Substance: CEFEPIME HYDROCHLORIDE
     Indication: Pyrexia
     Dosage: 2 GRAM
     Route: 042
     Dates: start: 20250304
  23. Megace F [Concomitant]
     Indication: Decreased appetite
     Dosage: 5 ML?SUSPENSION
     Route: 048
     Dates: start: 20241218
  24. PROSCAR [Concomitant]
     Active Substance: FINASTERIDE
     Indication: Benign prostatic hyperplasia
     Dosage: 5 MILLIGRAM
     Route: 048
     Dates: start: 20241107

REACTIONS (2)
  - Haematochezia [Recovered/Resolved]
  - Dyspnoea [Recovered/Resolved]

NARRATIVE: CASE EVENT DATE: 20241120
